FAERS Safety Report 15488576 (Version 3)
Quarter: 2018Q4

REPORT INFORMATION
  Report Type: Spontaneous
  Country: US (occurrence: US)
  Receive Date: 20181011
  Receipt Date: 20181025
  Transmission Date: 20190205
  Serious: No
  Sender: FDA-Public Use
  Company Number: US-PFIZER INC-2018407771

PATIENT
  Age: 78 Year
  Sex: Female
  Weight: 63.5 kg

DRUGS (3)
  1. XELJANZ [Suspect]
     Active Substance: TOFACITINIB CITRATE
     Dosage: 10 MG, 2X/DAY(TAKE 1 TABLET(S) TWICE A DAY BY ORAL ROUTE FOR 30 DAYS)
     Route: 048
     Dates: start: 201810
  2. XELJANZ [Suspect]
     Active Substance: TOFACITINIB CITRATE
     Indication: COLITIS ULCERATIVE
     Dosage: 10 MG, 1X/DAY
     Route: 048
     Dates: start: 201809
  3. SULFASALAZINE. [Concomitant]
     Active Substance: SULFASALAZINE
     Indication: COLITIS ULCERATIVE
     Dosage: 20 MG, 2X/DAY

REACTIONS (6)
  - Drug ineffective [Unknown]
  - Product dose omission [Unknown]
  - Flatulence [Unknown]
  - Diarrhoea [Not Recovered/Not Resolved]
  - Movement disorder [Unknown]
  - Muscle spasms [Unknown]

NARRATIVE: CASE EVENT DATE: 201810
